FAERS Safety Report 7796253-2 (Version None)
Quarter: 2011Q4

REPORT INFORMATION
  Report Type: 
  Country: None (occurrence: None)
  Receive Date: 20111004
  Receipt Date: 20110928
  Transmission Date: 20120403
  Serious: Yes (Hospitalization, Disabling, Other)
  Sender: FDA-Public Use
  Company Number: US-MERCK-1004USA01246

PATIENT
  Age: 46 Year
  Sex: Female
  Weight: 70 kg

DRUGS (4)
  1. ESTROGENS (UNSPECIFIED) [Concomitant]
     Indication: HORMONE REPLACEMENT THERAPY
     Route: 048
     Dates: start: 20050101, end: 20090101
  2. FOSAMAX [Suspect]
     Indication: OSTEOPOROSIS
     Route: 048
     Dates: start: 20010101, end: 20070101
  3. FOSAMAX PLUS D [Suspect]
     Indication: OSTEOPOROSIS
     Route: 048
     Dates: start: 20070910, end: 20080301
  4. VITAMIN D (UNSPECIFIED) [Concomitant]
     Route: 048
     Dates: start: 20010101

REACTIONS (33)
  - FEMUR FRACTURE [None]
  - OSTEOPOROSIS [None]
  - HAEMATOMA [None]
  - OSTEOARTHRITIS [None]
  - EXOSTOSIS [None]
  - DYSPNOEA EXERTIONAL [None]
  - ABDOMINAL HERNIA [None]
  - TRIGGER FINGER [None]
  - PAIN IN EXTREMITY [None]
  - CHOLELITHIASIS [None]
  - ENDOMETRIOSIS [None]
  - CHOLECYSTITIS [None]
  - IMPAIRED HEALING [None]
  - ARTHRITIS [None]
  - CALCIUM DEFICIENCY [None]
  - DYSURIA [None]
  - OSTEOPENIA [None]
  - STRESS FRACTURE [None]
  - PLANTAR FASCIITIS [None]
  - PANCREATIC MASS [None]
  - CHEST PAIN [None]
  - UTERINE DISORDER [None]
  - LOW TURNOVER OSTEOPATHY [None]
  - HYPERTENSION [None]
  - VITAMIN D DEFICIENCY [None]
  - JOINT INJURY [None]
  - CONTUSION [None]
  - INTERVERTEBRAL DISC DEGENERATION [None]
  - HIATUS HERNIA [None]
  - TOOTH FRACTURE [None]
  - ENDODONTIC PROCEDURE [None]
  - HAEMANGIOMA OF LIVER [None]
  - BACK PAIN [None]
